FAERS Safety Report 24700040 (Version 2)
Quarter: 2024Q4

REPORT INFORMATION
  Report Type: Report from Study
  Country: CA (occurrence: CA)
  Receive Date: 20241205
  Receipt Date: 20241208
  Transmission Date: 20250115
  Serious: Yes (Other)
  Sender: ABBVIE
  Company Number: CA-ABBVIE-6026306

PATIENT
  Age: 54 Year
  Sex: Female

DRUGS (2)
  1. SKYRIZI [Suspect]
     Active Substance: RISANKIZUMAB-RZAA
     Indication: Crohn^s disease
     Dosage: WEEK 12 AND THEN Q 8 WEEKS THEREAFTER
     Route: 058
     Dates: start: 20240111
  2. BENADRYL [Concomitant]
     Active Substance: DIPHENHYDRAMINE HYDROCHLORIDE
     Indication: Product used for unknown indication
     Route: 042

REACTIONS (6)
  - Swelling [Unknown]
  - Blindness transient [Recovered/Resolved]
  - Product storage error [Unknown]
  - Pain in extremity [Unknown]
  - Injection site swelling [Unknown]
  - Injection site reaction [Unknown]

NARRATIVE: CASE EVENT DATE: 20240101
